FAERS Safety Report 21898656 (Version 1)
Quarter: 2023Q1

REPORT INFORMATION
  Report Type: Spontaneous
  Country: US (occurrence: None)
  Receive Date: 20230121
  Receipt Date: 20230121
  Transmission Date: 20230417
  Serious: No
  Sender: FDA-Public Use
  Company Number: None

PATIENT
  Age: 23 Year
  Sex: Female
  Weight: 79.65 kg

DRUGS (2)
  1. DILTIAZEM [Suspect]
     Active Substance: DILTIAZEM
     Indication: Tachycardia
     Dosage: OTHER QUANTITY : 1 TABLET(S);?FREQUENCY : DAILY;?
     Route: 048
     Dates: start: 20230119, end: 20230120
  2. DILTIAZEM [Suspect]
     Active Substance: DILTIAZEM
     Indication: Postural orthostatic tachycardia syndrome

REACTIONS (6)
  - Dizziness [None]
  - Influenza like illness [None]
  - Cough [None]
  - Nasal congestion [None]
  - Pain [None]
  - Fatigue [None]
